FAERS Safety Report 23431297 (Version 1)
Quarter: 2024Q1

REPORT INFORMATION
  Report Type: Spontaneous
  Country: CN (occurrence: CN)
  Receive Date: 20240123
  Receipt Date: 20240123
  Transmission Date: 20240410
  Serious: Yes (Hospitalization)
  Sender: FDA-Public Use
  Company Number: None

PATIENT
  Age: 46 Year
  Sex: Female
  Weight: 65 kg

DRUGS (4)
  1. CYCLOPHOSPHAMIDE [Suspect]
     Active Substance: CYCLOPHOSPHAMIDE
     Indication: Breast cancer female
     Dosage: 1 G, ONE TIME IN ONE DAY DILUETED WITH 50 ML OF SODIUM CHLORIDE, AT 10: 00
     Route: 041
     Dates: start: 20231215, end: 20231215
  2. SODIUM CHLORIDE [Suspect]
     Active Substance: SODIUM CHLORIDE
     Indication: Medication dilution
     Dosage: 50 ML, ONE TIME IN ONE DAY, INJECTION, USED TO DILUTE CYCLOPHOSPHAMIDE 1 G, AT 10: 00
     Route: 041
     Dates: start: 20231215, end: 20231215
  3. SODIUM CHLORIDE [Suspect]
     Active Substance: SODIUM CHLORIDE
     Dosage: 250 ML, ONE TIME IN ONE DAY, INJECTION, USED TO DILUTE DOCETAXEL 120 MG, AT 10: 00
     Route: 041
     Dates: start: 20231215, end: 20231215
  4. DOCETAXEL [Suspect]
     Active Substance: DOCETAXEL\DOCETAXEL ANHYDROUS
     Indication: Breast cancer female
     Dosage: 120 MG, ONE TIME IN ONE DAY DILUETED WITH 250 ML OF SODIUM CHLORIDE, AT 10: 00
     Route: 041
     Dates: start: 20231215, end: 20231215

REACTIONS (1)
  - Hepatic function abnormal [Recovering/Resolving]

NARRATIVE: CASE EVENT DATE: 20240101
